FAERS Safety Report 24395316 (Version 1)
Quarter: 2024Q4

REPORT INFORMATION
  Report Type: Spontaneous
  Country: US (occurrence: US)
  Receive Date: 20241004
  Receipt Date: 20241004
  Transmission Date: 20250115
  Serious: Yes (Hospitalization)
  Sender: MERCK
  Company Number: US-009507513-2409USA009416

PATIENT
  Sex: Male

DRUGS (2)
  1. ISENTRESS [Suspect]
     Active Substance: RALTEGRAVIR POTASSIUM
     Indication: HIV infection
     Dosage: 600MG/DAILY
     Route: 048
  2. ISENTRESS [Suspect]
     Active Substance: RALTEGRAVIR POTASSIUM
     Indication: HIV infection
     Dosage: 3 400MG TABLETS DAILY
     Route: 048

REACTIONS (4)
  - Hospitalisation [Unknown]
  - Incorrect dose administered [Unknown]
  - Incorrect dose administered by product [Unknown]
  - Inappropriate schedule of product administration [Unknown]
